FAERS Safety Report 4603618-6 (Version None)
Quarter: 2005Q1

REPORT INFORMATION
  Report Type: 
  Country: None (occurrence: None)
  Receive Date: 20050310
  Receipt Date: 20050302
  Transmission Date: 20050727
  Serious: Yes (Hospitalization)
  Sender: FDA-Public Use
  Company Number: US-BOEHRINGER INGELHEIM PHARMMACEUTICALS, INC.-2005-BP-03287BP

PATIENT
  Sex: Female

DRUGS (2)
  1. CLONIDINE HCL [Suspect]
     Dates: start: 20040901, end: 20041101
  2. CLONIDINE HCL [Suspect]
     Dosage: 0.3 MG BID
     Dates: start: 20041101

REACTIONS (2)
  - ALOPECIA [None]
  - KNEE ARTHROPLASTY [None]
